FAERS Safety Report 8046886-3 (Version None)
Quarter: 2012Q1

REPORT INFORMATION
  Report Type: 
  Country: None (occurrence: None)
  Receive Date: 20120116
  Receipt Date: 20120104
  Transmission Date: 20120608
  Serious: Yes (Hospitalization)
  Sender: FDA-Public Use
  Company Number: JP-JNJFOC-20111200547

PATIENT
  Age: 34 Year
  Sex: Male

DRUGS (10)
  1. VALTREX [Concomitant]
     Indication: HERPES ZOSTER
     Route: 048
     Dates: start: 20100906, end: 20100913
  2. RITONAVIR [Suspect]
     Indication: HIV INFECTION
     Route: 048
     Dates: start: 20090205, end: 20101014
  3. PREZISTA [Suspect]
     Indication: HIV INFECTION
     Route: 048
     Dates: start: 20100903, end: 20100912
  4. LEXIVA [Suspect]
     Indication: HIV INFECTION
     Route: 048
     Dates: start: 20090205, end: 20100902
  5. LOPERAMIDE HCL [Concomitant]
     Indication: DIARRHOEA
     Route: 048
     Dates: start: 20100401, end: 20100602
  6. PRIMPERAN TAB [Concomitant]
     Indication: ABDOMINAL DISCOMFORT
     Route: 048
     Dates: start: 20100903, end: 20100905
  7. LOXONIN [Concomitant]
     Indication: HERPES ZOSTER
     Dates: start: 20100906, end: 20100913
  8. TRUVADA [Suspect]
     Indication: HIV INFECTION
     Route: 048
     Dates: start: 20090205, end: 20101014
  9. MOTILIUM [Concomitant]
     Indication: ABDOMINAL DISCOMFORT
     Dates: start: 20100906, end: 20100924
  10. LEXIVA [Suspect]
     Route: 048
     Dates: start: 20100913, end: 20101014

REACTIONS (2)
  - NAUSEA [None]
  - HERPES ZOSTER [None]
